FAERS Safety Report 9537762 (Version 1)
Quarter: 2013Q3

REPORT INFORMATION
  Report Type: Report from Study
  Country: GB (occurrence: GB)
  Receive Date: 20130919
  Receipt Date: 20130919
  Transmission Date: 20140515
  Serious: Yes (Hospitalization)
  Sender: FDA-Public Use
  Company Number: GB-ABBVIE-13P-167-1145191-00

PATIENT
  Sex: Female

DRUGS (1)
  1. HUMIRA [Suspect]
     Indication: ANKYLOSING SPONDYLITIS
     Dosage: UNKNOWN
     Route: 050
     Dates: start: 200903

REACTIONS (5)
  - Pain [Recovered/Resolved]
  - Drug effect decreased [Recovered/Resolved]
  - Infection [Recovered/Resolved]
  - Tonsillitis [Recovered/Resolved]
  - Gastroenteritis [Recovered/Resolved]
